FAERS Safety Report 17031311 (Version 1)
Quarter: 2019Q4

REPORT INFORMATION
  Report Type: Spontaneous
  Country: US (occurrence: US)
  Receive Date: 20191113
  Receipt Date: 20191113
  Transmission Date: 20200122
  Serious: Yes (Other)
  Sender: FDA-Public Use
  Company Number: None

PATIENT
  Age: 60 Year
  Sex: Male

DRUGS (4)
  1. HYDROCODONE/ACETAMINOPHEN 5/325 [Concomitant]
     Dates: start: 20191008, end: 20191112
  2. CAPECITABINE. [Suspect]
     Active Substance: CAPECITABINE
     Indication: COLON CANCER
     Route: 047
     Dates: start: 20190920, end: 20191031
  3. ENOXAPARIN [Concomitant]
     Active Substance: ENOXAPARIN
     Dates: start: 20191002, end: 20191112
  4. UREA 20% [Concomitant]
     Dates: start: 20191022, end: 20191112

REACTIONS (6)
  - Abdominal discomfort [None]
  - Skin discolouration [None]
  - Malaise [None]
  - Diarrhoea [None]
  - Pain in extremity [None]
  - Nausea [None]

NARRATIVE: CASE EVENT DATE: 20191029
